FAERS Safety Report 4701788-2 (Version None)
Quarter: 2005Q2

REPORT INFORMATION
  Report Type: 
  Country: None (occurrence: None)
  Receive Date: 20050627
  Receipt Date: 20050616
  Transmission Date: 20051028
  Serious: Yes (Other)
  Sender: FDA-Public Use
  Company Number: 2005079330

PATIENT
  Sex: Female

DRUGS (6)
  1. CELEBREX [Suspect]
     Indication: OSTEOARTHRITIS
     Dates: start: 19980101
  2. FOSAMAX [Suspect]
  3. SKELAXIN [Suspect]
  4. ALL OTHER THERAPEUTIC PRODUCTS (ALL OTHER THERAPEUTIC PRODUCTS) [Suspect]
     Indication: GASTROINTESTINAL DISORDER
  5. CHOLESTEROL-AND TRIGLYCERIDE REDUCERS (CHOLESTEROL-AND TRIGLYCERIDE RE [Suspect]
     Indication: BLOOD CHOLESTEROL
  6. THYROID TAB [Suspect]

REACTIONS (6)
  - ABDOMINAL HERNIA [None]
  - ANKLE FRACTURE [None]
  - CHOLELITHIASIS [None]
  - GASTROINTESTINAL DISORDER [None]
  - GASTROOESOPHAGEAL REFLUX DISEASE [None]
  - SPLEEN DISORDER [None]
